FAERS Safety Report 15805201 (Version 1)
Quarter: 2019Q1

REPORT INFORMATION
  Report Type: Spontaneous
  Country: GB (occurrence: GB)
  Receive Date: 20190110
  Receipt Date: 20190110
  Transmission Date: 20190417
  Serious: Yes (Other)
  Sender: FDA-Public Use
  Company Number: GB-TEVA-2019-GB-996808

PATIENT
  Age: 86 Year
  Sex: Female

DRUGS (1)
  1. TRIMETHOPRIM. [Suspect]
     Active Substance: TRIMETHOPRIM
     Dates: start: 20181208

REACTIONS (4)
  - Wheezing [Unknown]
  - Feeling hot [Unknown]
  - Swelling face [Unknown]
  - Flushing [Unknown]

NARRATIVE: CASE EVENT DATE: 20181208
